FAERS Safety Report 9093256 (Version 4)
Quarter: 2014Q2

REPORT INFORMATION
  Report Type: Spontaneous
  Country: US (occurrence: US)
  Receive Date: 20130131
  Receipt Date: 20140429
  Transmission Date: 20141212
  Serious: Yes (Other)
  Sender: FDA-Public Use
  Company Number: US-PFIZER INC-2013037589

PATIENT
  Age: 49 Year
  Sex: Female
  Weight: 145.13 kg

DRUGS (25)
  1. LYRICA [Suspect]
     Indication: FIBROMYALGIA
     Dosage: 200 MG, 2X/DAY
     Route: 048
     Dates: end: 20130123
  2. LYRICA [Suspect]
     Dosage: 100 MG, 2 AM, 1 NOON, 2 PM
     Route: 048
  3. GLUCOPHAGE [Concomitant]
     Dosage: 1000 MG, 2X/DAY
  4. AMARYL [Concomitant]
     Dosage: 4 MG, 2X/DAY
  5. ACTOS [Concomitant]
     Dosage: 45MG, 1 DAILY AT PM
  6. LANTUS [Concomitant]
     Indication: DIABETES MELLITUS
     Dosage: 85 IU, 1 TIME DAILY
  7. MAXZIDE [Concomitant]
     Dosage: 75 MG/50 MG
  8. VERAPAMIL [Concomitant]
     Dosage: 240 MG, 2X/DAY
  9. LIPITOR [Concomitant]
     Dosage: 40 MG, 1 DAILY AT BED TIME
  10. DEXILANT [Concomitant]
     Dosage: 60 MG, 1X/DAY
  11. REMERON [Concomitant]
     Dosage: 30 MG, 1 AT BED TIME
  12. PREMPHASE [Concomitant]
     Dosage: ESTROGENS CONJUGATED 0.625 MG, MEDROXYPROGESTERONE ACETATE 5 MG
  13. MOBIC [Concomitant]
     Dosage: 15 MG, 1X/DAY
  14. SINGULAIR [Concomitant]
     Dosage: 10 MG, 1 AT BEDTIME
  15. MAXAIR [Concomitant]
     Dosage: 1 PUFF - 4 TIMES DAILY (AS NEEDED ONLY)
  16. ADVAIR [Concomitant]
     Dosage: 500/50 - 2 PUFFS ONLY
  17. FLONASE [Concomitant]
     Dosage: 50 MG, 2 NOSE SPRAYS AT BED TIME
     Route: 045
  18. KLONOPIN [Concomitant]
     Dosage: 1 MG 1/2 TWICE DAILY, 2 AT BEDTIME
  19. EFEXOR XR [Concomitant]
     Dosage: 150 MG, 2X/DAY
  20. IMITREX [Concomitant]
     Indication: MIGRAINE
     Dosage: 100 MG, AS NEEDED
  21. IMITREX [Concomitant]
     Dosage: 6 MG INJECTIBLE - TAKE AS NEEDED FOR PAIN
  22. ULTRACET [Concomitant]
     Indication: PAIN
     Dosage: 37 1/2 MG - TAKE AS NEEDED
  23. PHENERGAN [Concomitant]
     Indication: NAUSEA
     Dosage: 25 MG, AS NEEDED
  24. CLARITIN [Concomitant]
     Dosage: UNK
  25. OSCAL [Concomitant]
     Dosage: UNK

REACTIONS (8)
  - Fibromyalgia [Not Recovered/Not Resolved]
  - Withdrawal syndrome [Not Recovered/Not Resolved]
  - Formication [Not Recovered/Not Resolved]
  - Insomnia [Not Recovered/Not Resolved]
  - Nervousness [Not Recovered/Not Resolved]
  - Headache [Not Recovered/Not Resolved]
  - Pruritus generalised [Not Recovered/Not Resolved]
  - Drug effect incomplete [Unknown]
